FAERS Safety Report 4551025-7 (Version None)
Quarter: 2005Q1

REPORT INFORMATION
  Report Type: 
  Country: None (occurrence: None)
  Receive Date: 20050113
  Receipt Date: 20040312
  Transmission Date: 20050727
  Serious: No
  Sender: FDA-Public Use
  Company Number: US-BRISTOL-MYERS SQUIBB COMPANY-12531927

PATIENT
  Age: 53 Year
  Sex: Female
  Weight: 52 kg

DRUGS (5)
  1. DESYREL [Suspect]
     Indication: DEPRESSION
     Dosage: 100MG-200MG DAILY
     Route: 048
  2. ASPIRIN [Concomitant]
  3. ZOCOR [Concomitant]
  4. ZOLOFT [Concomitant]
  5. CALCIUM GLUCONATE [Concomitant]

REACTIONS (1)
  - PIGMENTATION DISORDER [None]
